FAERS Safety Report 24303454 (Version 1)
Quarter: 2024Q3

REPORT INFORMATION
  Report Type: Spontaneous
  Country: US (occurrence: None)
  Receive Date: 20240909
  Receipt Date: 20240909
  Transmission Date: 20241017
  Serious: Yes (Other)
  Sender: Public
  Company Number: None

PATIENT
  Age: 62 Year
  Sex: Female
  Weight: 50.4 kg

DRUGS (7)
  1. OFLOXACIN [Suspect]
     Active Substance: OFLOXACIN
     Indication: Eye infection
     Dosage: 1 DROP 3 TIMES A DAY OPHTHALMIC
     Route: 047
     Dates: start: 20240908, end: 20240908
  2. pre- and probiotic [Concomitant]
  3. VITAMINS [Concomitant]
     Active Substance: VITAMINS
  4. H1 blocker [Concomitant]
  5. NAC [Concomitant]
  6. Magnesium Butyrate [Concomitant]
  7. DHEA Sulfate [Concomitant]

REACTIONS (2)
  - Eye pain [None]
  - Ocular discomfort [None]

NARRATIVE: CASE EVENT DATE: 20240908
